FAERS Safety Report 13946702 (Version 1)
Quarter: 2017Q3

REPORT INFORMATION
  Report Type: Not Available
  Country: US (occurrence: US)
  Receive Date: 20170907
  Receipt Date: 20170907
  Transmission Date: 20171128
  Serious: No
  Sender: FDA-Public Use
  Company Number: US-3M-2016-US-008283

PATIENT
  Age: 75 Year
  Sex: Female

DRUGS (1)
  1. PERIDEX [Suspect]
     Active Substance: CHLORHEXIDINE GLUCONATE
     Dosage: UNKNOWN
     Route: 048
     Dates: end: 20160818

REACTIONS (1)
  - Ageusia [Not Recovered/Not Resolved]
